FAERS Safety Report 5146668-6 (Version None)
Quarter: 2006Q4

REPORT INFORMATION
  Report Type: 
  Country: None (occurrence: None)
  Receive Date: 20061109
  Receipt Date: 20061031
  Transmission Date: 20070319
  Serious: Yes (Hospitalization, Other)
  Sender: FDA-Public Use
  Company Number: US-AVENTIS-200618961US

PATIENT
  Sex: Female

DRUGS (16)
  1. LANTUS [Suspect]
     Indication: DIABETES MELLITUS NON-INSULIN-DEPENDENT
     Dates: start: 20060701, end: 20060901
  2. LANTUS [Suspect]
     Dates: start: 20060901, end: 20060925
  3. LANTUS [Suspect]
     Dates: start: 20060926
  4. LANTUS [Suspect]
  5. OPTICLIK (INSULIN INJECTION PEN) [Suspect]
     Dosage: DOSE: UNK
     Dates: start: 20060701
  6. CLINDAMYCIN [Suspect]
     Indication: CELLULITIS
     Dosage: DOSE: UNK
     Route: 042
     Dates: start: 20060901, end: 20060901
  7. VANCOMYCIN [Suspect]
     Indication: CELLULITIS
     Dosage: DOSE: UNK
     Route: 042
     Dates: start: 20060901, end: 20060901
  8. ANTIBIOTICS [Suspect]
     Indication: CELLULITIS
     Dosage: DOSE: UNK
     Route: 030
     Dates: start: 20060901, end: 20060901
  9. METFORMIN HCL [Concomitant]
     Dosage: DOSE: UNK
  10. POTASSIUM ACETATE [Concomitant]
     Dosage: DOSE: UNK
     Route: 042
     Dates: start: 20060901, end: 20060901
  11. POTASSIUM ACETATE [Concomitant]
     Dosage: DOSE: UNK
     Route: 048
  12. LASIX [Concomitant]
     Dosage: DOSE: UNK
  13. ASPIRIN [Concomitant]
     Dosage: DOSE: UNK
  14. LEXAPRO [Concomitant]
     Dosage: DOSE: UNK
  15. HERBAL PREPARATION [Concomitant]
     Dosage: DOSE: UNK
  16. NOVOLOG [Concomitant]
     Dosage: DOSE: SLIDING SCALE
     Dates: start: 20060901

REACTIONS (9)
  - BLOOD GLUCOSE INCREASED [None]
  - CELLULITIS [None]
  - DIARRHOEA [None]
  - ERYTHEMA [None]
  - FUNGAL INFECTION [None]
  - HYPOKALAEMIA [None]
  - PAIN [None]
  - PYREXIA [None]
  - SKIN LESION [None]
